FAERS Safety Report 21206531 (Version 6)
Quarter: 2022Q4

REPORT INFORMATION
  Report Type: Report from Study
  Country: US (occurrence: US)
  Receive Date: 20220812
  Receipt Date: 20221003
  Transmission Date: 20230113
  Serious: Yes (Hospitalization, Other)
  Sender: FDA-Public Use
  Company Number: US-TAKEDA-2022TUS054798

PATIENT
  Age: 69 Year
  Sex: Female

DRUGS (20)
  1. TEDUGLUTIDE [Suspect]
     Active Substance: TEDUGLUTIDE
     Indication: Short-bowel syndrome
     Dosage: 0.261 MILLILITER, QD
     Route: 058
     Dates: start: 20220729
  2. TEDUGLUTIDE [Suspect]
     Active Substance: TEDUGLUTIDE
     Indication: Short-bowel syndrome
     Dosage: 0.261 MILLILITER, QD
     Route: 058
     Dates: start: 20220729
  3. TEDUGLUTIDE [Suspect]
     Active Substance: TEDUGLUTIDE
     Indication: Short-bowel syndrome
     Dosage: 0.261 MILLILITER, QD
     Route: 058
     Dates: start: 20220729
  4. TEDUGLUTIDE [Suspect]
     Active Substance: TEDUGLUTIDE
     Indication: Short-bowel syndrome
     Dosage: 0.261 MILLILITER, QD
     Route: 058
     Dates: start: 20220729
  5. TEDUGLUTIDE [Suspect]
     Active Substance: TEDUGLUTIDE
     Dosage: 0.261 MILLILITER, QD
     Route: 058
     Dates: start: 202207
  6. TEDUGLUTIDE [Suspect]
     Active Substance: TEDUGLUTIDE
     Dosage: 0.261 MILLILITER, QD
     Route: 058
     Dates: start: 202207
  7. TEDUGLUTIDE [Suspect]
     Active Substance: TEDUGLUTIDE
     Dosage: 0.261 MILLILITER, QD
     Route: 058
     Dates: start: 202207
  8. TEDUGLUTIDE [Suspect]
     Active Substance: TEDUGLUTIDE
     Dosage: 0.261 MILLILITER, QD
     Route: 058
     Dates: start: 202207
  9. TEDUGLUTIDE [Suspect]
     Active Substance: TEDUGLUTIDE
     Dosage: 0.261 MILLILITER, QD
     Route: 058
     Dates: start: 20220722, end: 20220901
  10. TEDUGLUTIDE [Suspect]
     Active Substance: TEDUGLUTIDE
     Dosage: 0.261 MILLILITER, QD
     Route: 058
     Dates: start: 20220722, end: 20220901
  11. TEDUGLUTIDE [Suspect]
     Active Substance: TEDUGLUTIDE
     Dosage: 0.261 MILLILITER, QD
     Route: 058
     Dates: start: 20220722, end: 20220901
  12. TEDUGLUTIDE [Suspect]
     Active Substance: TEDUGLUTIDE
     Dosage: 0.261 MILLILITER, QD
     Route: 058
     Dates: start: 20220722, end: 20220901
  13. TEDUGLUTIDE [Suspect]
     Active Substance: TEDUGLUTIDE
     Dosage: UNK
     Route: 058
     Dates: start: 20220801
  14. TEDUGLUTIDE [Suspect]
     Active Substance: TEDUGLUTIDE
     Dosage: UNK
     Route: 058
     Dates: start: 20220801
  15. TEDUGLUTIDE [Suspect]
     Active Substance: TEDUGLUTIDE
     Dosage: UNK
     Route: 058
     Dates: start: 20220801
  16. TEDUGLUTIDE [Suspect]
     Active Substance: TEDUGLUTIDE
     Dosage: UNK
     Route: 058
     Dates: start: 20220801
  17. TEDUGLUTIDE [Suspect]
     Active Substance: TEDUGLUTIDE
     Dosage: 0.261 MILLILITER, QD
     Route: 058
     Dates: start: 20220801, end: 20220901
  18. TEDUGLUTIDE [Suspect]
     Active Substance: TEDUGLUTIDE
     Dosage: 0.261 MILLILITER, QD
     Route: 058
     Dates: start: 20220801, end: 20220901
  19. TEDUGLUTIDE [Suspect]
     Active Substance: TEDUGLUTIDE
     Dosage: 0.261 MILLILITER, QD
     Route: 058
     Dates: start: 20220801, end: 20220901
  20. TEDUGLUTIDE [Suspect]
     Active Substance: TEDUGLUTIDE
     Dosage: 0.261 MILLILITER, QD
     Route: 058
     Dates: start: 20220801, end: 20220901

REACTIONS (6)
  - Atrial fibrillation [Unknown]
  - Adverse drug reaction [Unknown]
  - Peripheral swelling [Unknown]
  - Heart rate irregular [Unknown]
  - Influenza like illness [Recovered/Resolved]
  - Hypervolaemia [Unknown]

NARRATIVE: CASE EVENT DATE: 20220814
